FAERS Safety Report 5572156-9 (Version None)
Quarter: 2007Q4

REPORT INFORMATION
  Report Type: 
  Country: None (occurrence: None)
  Receive Date: 20071221
  Receipt Date: 20071209
  Transmission Date: 20080405
  Serious: Yes (Hospitalization)
  Sender: FDA-Public Use
  Company Number: ES-PFIZER INC-2007104541

PATIENT
  Age: 82 Year
  Sex: Male

DRUGS (1)
  1. LYRICA [Suspect]
     Dosage: DAILY DOSE:150MG
     Route: 048

REACTIONS (3)
  - INTESTINAL OBSTRUCTION [None]
  - SPEECH DISORDER [None]
  - URINARY TRACT OBSTRUCTION [None]
